FAERS Safety Report 5589468-5 (Version None)
Quarter: 2008Q1

REPORT INFORMATION
  Report Type: 
  Country: None (occurrence: None)
  Receive Date: 20080114
  Receipt Date: 20080109
  Transmission Date: 20080703
  Serious: Yes (Life-Threatening)
  Sender: FDA-Public Use
  Company Number: FR-AVENTIS-200810083FR

PATIENT
  Age: 78 Year
  Sex: Female

DRUGS (16)
  1. ARAVA [Suspect]
     Indication: RHEUMATOID ARTHRITIS
     Route: 048
     Dates: start: 20040901, end: 20050601
  2. CORTANCYL [Suspect]
     Indication: RHEUMATOID ARTHRITIS
     Route: 048
     Dates: start: 20051101
  3. HUMIRA [Suspect]
     Indication: RHEUMATOID ARTHRITIS
     Route: 058
     Dates: start: 20060901, end: 20061101
  4. HUMIRA [Suspect]
     Route: 058
     Dates: start: 20061101, end: 20070501
  5. ENBREL [Suspect]
     Indication: RHEUMATOID ARTHRITIS
     Route: 058
     Dates: start: 20031201, end: 20040601
  6. KINERET [Suspect]
     Indication: RHEUMATOID ARTHRITIS
     Route: 058
     Dates: start: 20051001, end: 20051201
  7. METHOTREXATE [Suspect]
     Indication: RHEUMATOID ARTHRITIS
     Route: 048
     Dates: start: 19971101, end: 20070601
  8. INIPOMP                            /01263201/ [Concomitant]
     Route: 048
  9. SECTRAL [Concomitant]
     Indication: HYPERTENSION
     Route: 048
  10. RIVOTRIL [Concomitant]
     Route: 048
  11. TRIATEC                            /00885601/ [Concomitant]
     Route: 048
  12. CALCIDOSE VITAMINE D [Concomitant]
     Route: 048
  13. TANGANIL                           /00129601/ [Concomitant]
     Route: 048
  14. DAFALGAN                           /00020001/ [Concomitant]
     Route: 048
  15. LANTUS [Concomitant]
     Indication: DIABETES MELLITUS
     Route: 058
  16. NOVORAPID [Concomitant]
     Indication: DIABETES MELLITUS
     Route: 058

REACTIONS (1)
  - RECTAL CANCER [None]
